FAERS Safety Report 13337765 (Version 1)
Quarter: 2017Q1

REPORT INFORMATION
  Report Type: Spontaneous
  Country: GB (occurrence: GB)
  Receive Date: 20170315
  Receipt Date: 20170315
  Transmission Date: 20170428
  Serious: Yes (Other)
  Sender: FDA-Public Use
  Company Number: GB-TEVA-749062ACC

PATIENT
  Age: 22 Year
  Sex: Female
  Weight: 46 kg

DRUGS (4)
  1. ACETYL TYROSINE [Concomitant]
  2. ST JOHN^S WORT EXTRACT [Concomitant]
  3. CITALOPRAM [Suspect]
     Active Substance: CITALOPRAM HYDROBROMIDE
     Indication: SOCIAL ANXIETY DISORDER
     Route: 048
     Dates: start: 201503, end: 201603
  4. INOSITOL [Concomitant]
     Active Substance: INOSITOL

REACTIONS (5)
  - Disturbance in sexual arousal [Not Recovered/Not Resolved]
  - Loss of libido [Not Recovered/Not Resolved]
  - Hypoaesthesia [Not Recovered/Not Resolved]
  - Blunted affect [Not Recovered/Not Resolved]
  - Fatigue [Not Recovered/Not Resolved]

NARRATIVE: CASE EVENT DATE: 201604
